FAERS Safety Report 22397491 (Version 1)
Quarter: 2023Q2

REPORT INFORMATION
  Report Type: Spontaneous
  Country: US (occurrence: US)
  Receive Date: 20230602
  Receipt Date: 20230602
  Transmission Date: 20230721
  Serious: No
  Sender: FDA-Public Use
  Company Number: US-SUN PHARMACEUTICAL INDUSTRIES LTD-2022R1-370210

PATIENT
  Sex: Female

DRUGS (1)
  1. BROMSITE [Suspect]
     Active Substance: BROMFENAC SODIUM
     Indication: Cataract operation
     Dosage: UNK
     Route: 065

REACTIONS (4)
  - Product use complaint [Unknown]
  - Product container issue [Unknown]
  - Product physical consistency issue [Unknown]
  - Product packaging quantity issue [Unknown]
